FAERS Safety Report 7670257 (Version 5)
Quarter: 2013Q1

REPORT INFORMATION
  Report Type: Spontaneous
  Country: US (occurrence: US)
  Receive Date: 20101116
  Receipt Date: 20130306
  Transmission Date: 20140127
  Serious: Yes (Other)
  Sender: FDA-Public Use
  Company Number: US-JNJFOC-20101103085

PATIENT
  Age: 50 Year
  Sex: Female

DRUGS (4)
  1. DOXORUBICIN HYDROCHLORIDE (DOXIL) [Suspect]
     Indication: OVARIAN EPITHELIAL CANCER RECURRENT
     Route: 042
     Dates: start: 200504, end: 200603
  2. DOXORUBICIN HYDROCHLORIDE (DOXIL) [Suspect]
     Indication: OVARIAN EPITHELIAL CANCER RECURRENT
     Route: 042
     Dates: start: 200704
  3. DOXORUBICIN HYDROCHLORIDE (DOXIL) [Suspect]
     Indication: OVARIAN EPITHELIAL CANCER RECURRENT
     Dosage: UNSPECIFIED DOSE EVERY 4-7 WEEKS FOR 4 YEARS;  CUMULATIVE DOSE 1350 MG
     Route: 042
     Dates: start: 200401, end: 200503
  4. CARBOPLATIN [Suspect]
     Indication: OVARIAN EPITHELIAL CANCER
     Dosage: 555 MG X 4 DOSES
     Route: 065
     Dates: start: 200404, end: 20040618

REACTIONS (2)
  - Hyperkeratosis [Unknown]
  - Skin toxicity [Unknown]
